FAERS Safety Report 7664716 (Version 2)
Quarter: 2017Q4

REPORT INFORMATION
  Report Type: Spontaneous
  Country: GB (occurrence: GB)
  Receive Date: 20101111
  Receipt Date: 20171208
  Transmission Date: 20180321
  Serious: Yes (Other)
  Sender: FDA-Public Use
  Company Number: GXKR2010GB12369

PATIENT
  Sex: Female

DRUGS (4)
  1. INFLUENZA VIRUS VACCINE [Suspect]
     Active Substance: INFLUENZA VIRUS VACCINE
     Indication: PROPHYLAXIS
     Dosage: 1 DF, ONCE/SINGLE
     Route: 065
     Dates: start: 200910, end: 200910
  2. CLARITHROMYCIN. [Suspect]
     Active Substance: CLARITHROMYCIN
     Indication: PRODUCT USED FOR UNKNOWN INDICATION
     Dosage: UNK
     Route: 065
  3. CORTISONE [Suspect]
     Active Substance: CORTISONE\HYDROCORTISONE
     Indication: PRODUCT USED FOR UNKNOWN INDICATION
     Dosage: UNK
     Route: 065
  4. PANDEMRIX [Suspect]
     Active Substance: INFLUENZA VIRUS VACCINE, SWINE
     Indication: PROPHYLAXIS
     Dosage: 1 DF, ONCE/SINGLE
     Route: 065
     Dates: start: 200911, end: 200911

REACTIONS (15)
  - Cough [Not Recovered/Not Resolved]
  - Hypersensitivity [Not Recovered/Not Resolved]
  - Ill-defined disorder [Not Recovered/Not Resolved]
  - Sneezing [Not Recovered/Not Resolved]
  - Asthma [Not Recovered/Not Resolved]
  - Arthralgia [Not Recovered/Not Resolved]
  - Rhinorrhoea [Not Recovered/Not Resolved]
  - Rhinitis [Not Recovered/Not Resolved]
  - Wheezing [Not Recovered/Not Resolved]
  - Condition aggravated [Not Recovered/Not Resolved]
  - Dyspnoea [Not Recovered/Not Resolved]
  - Obstructive airways disorder [Not Recovered/Not Resolved]
  - Rhinitis perennial [Not Recovered/Not Resolved]
  - Insomnia [Not Recovered/Not Resolved]
  - Fatigue [Not Recovered/Not Resolved]

NARRATIVE: CASE EVENT DATE: 2009
